FAERS Safety Report 15378834 (Version 1)
Quarter: 2018Q3

REPORT INFORMATION
  Report Type: Spontaneous
  Country: US (occurrence: US)
  Receive Date: 20180913
  Receipt Date: 20180913
  Transmission Date: 20181010
  Serious: No
  Sender: FDA-Public Use
  Company Number: US-GLAXOSMITHKLINE-US2018160714

PATIENT
  Age: 8 Year
  Sex: Male

DRUGS (2)
  1. FLOVENT [Suspect]
     Active Substance: FLUTICASONE PROPIONATE
     Indication: ASTHMA
     Dosage: 2 PUFF(S), QD
     Route: 055
  2. PROAIR HFA [Concomitant]
     Active Substance: ALBUTEROL SULFATE

REACTIONS (2)
  - Product quality issue [Unknown]
  - Drug dose omission [Recovering/Resolving]

NARRATIVE: CASE EVENT DATE: 20180831
